FAERS Safety Report 20619005 (Version 2)
Quarter: 2022Q2

REPORT INFORMATION
  Report Type: Spontaneous
  Country: FR (occurrence: FR)
  Receive Date: 20220322
  Receipt Date: 20220406
  Transmission Date: 20220721
  Serious: Yes (Life-Threatening)
  Sender: FDA-Public Use
  Company Number: FR-AFSSAPS-AN20220640

PATIENT
  Age: 48 Year
  Sex: Male
  Weight: 89.5 kg

DRUGS (4)
  1. VENLAFAXINE [Suspect]
     Active Substance: VENLAFAXINE HYDROCHLORIDE
     Indication: Depression
     Dosage: 150 MILLIGRAM, DAILY, UNTIL 11-FEB-2022
     Route: 048
  2. INNOHEP [Suspect]
     Active Substance: TINZAPARIN SODIUM
     Indication: Portal vein thrombosis
     Dosage: 16000 INTERNATIONAL UNIT, DAILY
     Route: 058
     Dates: start: 20220211, end: 20220212
  3. PIPERACILLIN SODIUM\TAZOBACTAM SODIUM [Concomitant]
     Active Substance: PIPERACILLIN SODIUM\TAZOBACTAM SODIUM
     Indication: Bacterial sepsis
     Dosage: 4 GRAM, TID
     Route: 042
     Dates: start: 20220211, end: 20220212
  4. CEFTRIAXONE [Concomitant]
     Active Substance: CEFTRIAXONE
     Indication: Bacterial sepsis
     Dosage: 1 GRAM, QD
     Route: 042
     Dates: start: 20220210, end: 20220211

REACTIONS (1)
  - Shock haemorrhagic [Recovered/Resolved]

NARRATIVE: CASE EVENT DATE: 20220212
